FAERS Safety Report 5493954-6 (Version None)
Quarter: 2007Q4

REPORT INFORMATION
  Report Type: 
  Country: None (occurrence: None)
  Receive Date: 20071023
  Receipt Date: 20071011
  Transmission Date: 20080405
  Serious: Yes (Other)
  Sender: FDA-Public Use
  Company Number: PFIZER INC-2006143725

PATIENT
  Sex: Female
  Weight: 73.2 kg

DRUGS (4)
  1. TRIFLUCAN [Suspect]
     Indication: FUNGAL INFECTION
     Dosage: DAILY DOSE:50MG
     Route: 048
     Dates: start: 20060914, end: 20060922
  2. XANAX [Concomitant]
  3. ZOLPIDEM TARTRATE [Concomitant]
  4. ALL OTHER THERAPEUTIC PRODUCTS [Concomitant]

REACTIONS (8)
  - FEEDING DISORDER [None]
  - FURUNCLE [None]
  - GENITAL DISCHARGE [None]
  - HEPATITIS [None]
  - HYPERTENSION [None]
  - PAIN [None]
  - SKIN DISORDER [None]
  - TYPE 2 DIABETES MELLITUS [None]
